FAERS Safety Report 15933785 (Version 1)
Quarter: 2019Q1

REPORT INFORMATION
  Report Type: Spontaneous
  Country: GB (occurrence: GB)
  Receive Date: 20190207
  Receipt Date: 20190207
  Transmission Date: 20190417
  Serious: Yes (Other)
  Sender: FDA-Public Use
  Company Number: GB-PFIZER INC-2019047918

PATIENT

DRUGS (4)
  1. SODIUM CHLORIDE. [Suspect]
     Active Substance: SODIUM CHLORIDE
     Dosage: 1 UNK, CYCLIC (CYCLE-2, INFUSION STOPPED AFTER APPROXIMATELY 10MINS)
     Route: 042
     Dates: start: 20190107, end: 20190107
  2. IRINOTECAN HCL [Suspect]
     Active Substance: IRINOTECAN HYDROCHLORIDE
     Dosage: 300 MG, CYCLIC (CYCLE-2, INFUSION STOPPED AFTER APPROXIMATELY 10MINS)
     Route: 065
     Dates: start: 20190107, end: 20190107
  3. IRINOTECAN HCL [Suspect]
     Active Substance: IRINOTECAN HYDROCHLORIDE
     Dosage: 300 MG, CYCLIC (CYCLE-1, INFUSION STOPPED AFTER APPROXIMATELY 10MINS)
     Route: 065
     Dates: start: 20181220, end: 20181220
  4. SODIUM CHLORIDE. [Suspect]
     Active Substance: SODIUM CHLORIDE
     Indication: MEDICATION DILUTION
     Dosage: 1 UNK, CYCLIC (CYCLE-1, INFUSION STOPPED AFTER APPROXIMATELY 10MINS)
     Route: 042
     Dates: start: 20181220, end: 20181220

REACTIONS (2)
  - Anaphylactoid reaction [Unknown]
  - Blood pressure increased [Unknown]

NARRATIVE: CASE EVENT DATE: 20181220
